FAERS Safety Report 25749056 (Version 1)
Quarter: 2025Q3

REPORT INFORMATION
  Report Type: Spontaneous
  Country: KR (occurrence: KR)
  Receive Date: 20250902
  Receipt Date: 20250902
  Transmission Date: 20251021
  Serious: Yes (Other)
  Sender: ROCHE
  Company Number: KR-ROCHE-10000376643

PATIENT
  Age: 62 Year
  Sex: Female

DRUGS (4)
  1. ALECENSA [Suspect]
     Active Substance: ALECTINIB HYDROCHLORIDE
     Indication: Non-small cell lung cancer
     Route: 065
  2. ALECENSA [Suspect]
     Active Substance: ALECTINIB HYDROCHLORIDE
     Route: 065
  3. GEMCITABINE [Concomitant]
     Active Substance: GEMCITABINE
  4. ABRAXANE [Concomitant]
     Active Substance: PACLITAXEL

REACTIONS (3)
  - Abdominal pain [Unknown]
  - Ductal adenocarcinoma of pancreas [Unknown]
  - Pancreatic carcinoma [Unknown]
